FAERS Safety Report 4697377-9 (Version None)
Quarter: 2005Q2

REPORT INFORMATION
  Report Type: 
  Country: None (occurrence: None)
  Receive Date: 20050621
  Receipt Date: 20050615
  Transmission Date: 20051028
  Serious: Yes (Hospitalization)
  Sender: FDA-Public Use
  Company Number: S05-USA-03056-01

PATIENT
  Age: 43 Year
  Sex: Female

DRUGS (2)
  1. CAMPRAL [Suspect]
     Indication: ABSTAINS FROM ALCOHOL
     Dates: start: 20050601
  2. ALCOHOL [Suspect]

REACTIONS (1)
  - KETOACIDOSIS [None]
